FAERS Safety Report 8571347-2 (Version None)
Quarter: 2012Q3

REPORT INFORMATION
  Report Type: 
  Country: None (occurrence: None)
  Receive Date: 20120806
  Receipt Date: 20120724
  Transmission Date: 20120928
  Serious: No
  Sender: FDA-Public Use
  Company Number: US-ASTRAZENECA-2012SE42226

PATIENT
  Age: 37 Year
  Sex: Female
  Weight: 51.7 kg

DRUGS (10)
  1. BUSPAR [Concomitant]
     Indication: ANXIETY
  2. SEROQUEL XR [Suspect]
     Indication: BIPOLAR DISORDER
     Route: 048
     Dates: start: 20110201
  3. HCTZ FLUID PILL [Concomitant]
  4. ADDERALL 5 [Concomitant]
  5. NEXIUM [Suspect]
     Indication: IRRITABLE BOWEL SYNDROME
     Route: 048
     Dates: start: 20080502
  6. NEXIUM [Suspect]
     Indication: GASTROOESOPHAGEAL REFLUX DISEASE
     Route: 048
     Dates: start: 20080502
  7. PHENERGAN HCL [Concomitant]
  8. TRAMADOL HCL [Concomitant]
     Indication: BACK PAIN
  9. BACLOFEN [Concomitant]
  10. MECLIZINE [Concomitant]
     Indication: VERTIGO

REACTIONS (12)
  - GALLBLADDER DISORDER [None]
  - FEELING ABNORMAL [None]
  - OFF LABEL USE [None]
  - COUGH [None]
  - VOMITING [None]
  - GASTRIC DISORDER [None]
  - NAUSEA [None]
  - DYSKINESIA [None]
  - NEPHROLITHIASIS [None]
  - ABDOMINAL DISCOMFORT [None]
  - VERTIGO [None]
  - DRUG DEPENDENCE [None]
